FAERS Safety Report 20426872 (Version 1)
Quarter: 2022Q1

REPORT INFORMATION
  Report Type: Report from Study
  Country: US (occurrence: US)
  Receive Date: 20220204
  Receipt Date: 20220204
  Transmission Date: 20220423
  Serious: No
  Sender: FDA-Public Use
  Company Number: US-EXELIXIS-CABO-21046269

PATIENT
  Sex: Male
  Weight: 95.238 kg

DRUGS (13)
  1. CABOMETYX [Suspect]
     Active Substance: CABOZANTINIB S-MALATE
     Indication: Renal cell carcinoma
     Dosage: 40 MG, QD
     Dates: start: 20211026
  2. CABOMETYX [Suspect]
     Active Substance: CABOZANTINIB S-MALATE
     Indication: Metastases to kidney
  3. CABOMETYX [Suspect]
     Active Substance: CABOZANTINIB S-MALATE
     Indication: Metastases to lung
  4. ACETAMINOPHEN [Concomitant]
     Active Substance: ACETAMINOPHEN
  5. AMLODIPINE [Concomitant]
     Active Substance: AMLODIPINE BESYLATE
  6. CIALIS [Concomitant]
     Active Substance: TADALAFIL
  7. IMODIUM [Concomitant]
     Active Substance: LOPERAMIDE HYDROCHLORIDE
  8. JARDIANCE [Concomitant]
     Active Substance: EMPAGLIFLOZIN
  9. LIPITOR [Concomitant]
     Active Substance: ATORVASTATIN CALCIUM
  10. LISINOPRIL [Concomitant]
     Active Substance: LISINOPRIL
  11. VITAMINS [Concomitant]
     Active Substance: VITAMINS
  12. VITAMIN D [Concomitant]
     Active Substance: VITAMIN D NOS
  13. NOVOLIN NOS [Concomitant]
     Active Substance: INSULIN HUMAN

REACTIONS (19)
  - Appetite disorder [Not Recovered/Not Resolved]
  - Faeces soft [Not Recovered/Not Resolved]
  - Lacrimation increased [Unknown]
  - Rhinorrhoea [Unknown]
  - Faeces hard [Unknown]
  - Rectal ulcer [Not Recovered/Not Resolved]
  - Nasal ulcer [Not Recovered/Not Resolved]
  - Abdominal discomfort [Unknown]
  - Balance disorder [Not Recovered/Not Resolved]
  - Sensitive skin [Not Recovered/Not Resolved]
  - Temperature regulation disorder [Not Recovered/Not Resolved]
  - Hyperkeratosis [Not Recovered/Not Resolved]
  - Skin ulcer [Not Recovered/Not Resolved]
  - Asthenia [Unknown]
  - Fatigue [Not Recovered/Not Resolved]
  - Taste disorder [Not Recovered/Not Resolved]
  - Nausea [Unknown]
  - Blood pressure increased [Recovering/Resolving]
  - Dry skin [Unknown]
